FAERS Safety Report 7843221 (Version 2)
Quarter: 2013Q4

REPORT INFORMATION
  Report Type: Spontaneous
  Country: US (occurrence: US)
  Receive Date: 20110307
  Receipt Date: 20131112
  Transmission Date: 20140711
  Serious: Yes (Hospitalization, Other)
  Sender: FDA-Public Use
  Company Number: US-BAYER-2011-020442

PATIENT
  Age: 21 Year
  Sex: Female
  Weight: 95.24 kg

DRUGS (8)
  1. YASMIN [Suspect]
     Indication: MENSTRUAL CYCLE MANAGEMENT
     Dosage: UNK
     Route: 048
     Dates: start: 20070715, end: 200911
  2. OCELLA [Suspect]
     Dosage: UNK
     Dates: start: 20070715, end: 200911
  3. ASPIRIN [Concomitant]
  4. TYLENOL PM [Concomitant]
  5. EXTRA STRENGTH TYLENOL [Concomitant]
  6. RANITIDINE [Concomitant]
     Dosage: 300 MG, UNK
  7. PROPOFOL [Concomitant]
  8. XANAX [Concomitant]

REACTIONS (10)
  - Cholecystitis chronic [None]
  - Cholelithiasis [None]
  - Injury [None]
  - Pain [None]
  - Anxiety [None]
  - Nausea [None]
  - Asthenia [None]
  - Palpitations [None]
  - Dyspnoea [None]
  - Infection [None]
